FAERS Safety Report 26198993 (Version 1)
Quarter: 2025Q4

REPORT INFORMATION
  Report Type: Spontaneous
  Country: CN (occurrence: CN)
  Receive Date: 20251225
  Receipt Date: 20251225
  Transmission Date: 20260117
  Serious: Yes (Hospitalization, Congenital Anomaly, Other)
  Sender: SANOFI AVENTIS
  Company Number: CN-SA-2025SA382388

PATIENT
  Age: 87 Year
  Sex: Female
  Weight: 37 kg

DRUGS (1)
  1. ZOLPIDEM TARTRATE [Suspect]
     Active Substance: ZOLPIDEM TARTRATE
     Indication: Symptomatic treatment
     Dosage: 10 MG, QD
     Route: 048
     Dates: start: 20251201, end: 20251201

REACTIONS (5)
  - Coma [Recovered/Resolved]
  - Unresponsive to stimuli [Recovering/Resolving]
  - Night sweats [Recovering/Resolving]
  - Blood pressure decreased [Recovering/Resolving]
  - Somnolence [Recovering/Resolving]

NARRATIVE: CASE EVENT DATE: 20251201
